FAERS Safety Report 6550291-6 (Version None)
Quarter: 2010Q1

REPORT INFORMATION
  Report Type: 
  Country: None (occurrence: None)
  Receive Date: 20100125
  Receipt Date: 20100114
  Transmission Date: 20100710
  Serious: Yes (Life-Threatening, Hospitalization)
  Sender: FDA-Public Use
  Company Number: GB-ROCHE-643535

PATIENT
  Sex: Female
  Weight: 55.5 kg

DRUGS (1)
  1. TAMIFLU [Suspect]
     Dosage: RECEIVED 3 DOSES IN TOTAL
     Route: 048
     Dates: start: 20090708, end: 20090709

REACTIONS (6)
  - DRUG HYPERSENSITIVITY [None]
  - HEPATITIS [None]
  - KIDNEY INFECTION [None]
  - LIVER INJURY [None]
  - PNEUMONIA [None]
  - SYSTEMIC INFLAMMATORY RESPONSE SYNDROME [None]
